FAERS Safety Report 18352690 (Version 1)
Quarter: 2020Q4

REPORT INFORMATION
  Report Type: Spontaneous
  Country: CA (occurrence: CA)
  Receive Date: 20201007
  Receipt Date: 20201007
  Transmission Date: 20210114
  Serious: Yes (Other)
  Sender: FDA-Public Use
  Company Number: CA-ACCORD-204277

PATIENT
  Age: 71 Year
  Sex: Male

DRUGS (6)
  1. CAFFEINE/CODEINE PHOSPHATE/PARACETAMOL [Concomitant]
     Active Substance: ACETAMINOPHEN\CAFFEINE\CODEINE PHOSPHATE
  2. OXALIPLATIN. [Suspect]
     Active Substance: OXALIPLATIN
     Indication: PANCREATIC CARCINOMA
     Dosage: 1 EVERY 2 WEEKS, SOLUTION INTRAVENOUS,  INJECTION SINGLE USE VIAL
  3. MUPIROCIN/MUPIROCIN CALCIUM [Concomitant]
     Active Substance: MUPIROCIN\MUPIROCIN CALCIUM
     Dosage: OINTMENT TOPICAL
  4. RAPAFLO [Concomitant]
     Active Substance: SILODOSIN
  5. DEXAMETHASONE. [Concomitant]
     Active Substance: DEXAMETHASONE
     Dosage: LIQUID INTRA- ARTICULAR
  6. GRANISETRON [Concomitant]
     Active Substance: GRANISETRON

REACTIONS (4)
  - Infusion related reaction [Unknown]
  - Pruritus [Unknown]
  - Off label use [Unknown]
  - Paraesthesia [Unknown]
